FAERS Safety Report 18618065 (Version 1)
Quarter: 2020Q4

REPORT INFORMATION
  Report Type: Spontaneous
  Country: US (occurrence: US)
  Receive Date: 20201212
  Receipt Date: 20201212
  Transmission Date: 20210114
  Serious: No
  Sender: FDA-Public Use
  Company Number: None

PATIENT
  Age: 75 Year
  Sex: Female
  Weight: 59.4 kg

DRUGS (12)
  1. VALSARTAN 160MG [Concomitant]
     Active Substance: VALSARTAN
  2. BRAFTOVI [Suspect]
     Active Substance: ENCORAFENIB
  3. METFORMIN 500MG [Concomitant]
     Active Substance: METFORMIN HYDROCHLORIDE
  4. LEVOTHYROXINE 88MCG [Concomitant]
     Active Substance: LEVOTHYROXINE
  5. LEVEMIR [Concomitant]
     Active Substance: INSULIN DETEMIR
  6. AMLODIPINE [Concomitant]
     Active Substance: AMLODIPINE BESYLATE
  7. OMEPRAZOLE 20MG [Concomitant]
     Active Substance: OMEPRAZOLE
  8. METAXALONE 800MG [Concomitant]
  9. MEKTOVI 15 MG [Concomitant]
  10. ROSUVASTATIN 10MG [Concomitant]
     Active Substance: ROSUVASTATIN
  11. LABETALOL 300MG [Concomitant]
  12. ALEVE [Concomitant]
     Active Substance: NAPROXEN SODIUM

REACTIONS (2)
  - Loss of consciousness [None]
  - Fatigue [None]

NARRATIVE: CASE EVENT DATE: 20201211
